FAERS Safety Report 6882227-2 (Version None)
Quarter: 2010Q3

REPORT INFORMATION
  Report Type: 
  Country: None (occurrence: None)
  Receive Date: 20100729
  Receipt Date: 20100723
  Transmission Date: 20110219
  Serious: Yes (Hospitalization, Other)
  Sender: FDA-Public Use
  Company Number: US-ELI_LILLY_AND_COMPANY-US201001002891

PATIENT
  Sex: Female
  Weight: 121.9 kg

DRUGS (25)
  1. BYETTA [Suspect]
     Dosage: 5 UG, 2/D
     Route: 058
     Dates: start: 20070201, end: 20080201
  2. GLIPIZIDE [Concomitant]
  3. METFORMIN HCL [Concomitant]
     Dosage: 1000 MG, EACH MORNING
     Route: 048
  4. METFORMIN HCL [Concomitant]
     Dosage: 500 MG, EACH EVENING
     Route: 048
  5. BENAZEPRIL W/HYDROCHLOROTHIAZIDE [Concomitant]
     Dosage: UNK, DAILY (1/D)
     Route: 048
  6. LIDODERM [Concomitant]
  7. LORAZEPAM [Concomitant]
     Indication: ANXIETY
     Dosage: 0.5 MG, AS NEEDED
     Route: 048
  8. TIZANIDINE HCL [Concomitant]
     Indication: NECK PAIN
     Dosage: 4 MG, AS NEEDED
     Route: 048
  9. SULFAMETHOXAZOLE AND TRIMETHOPRIM [Concomitant]
     Dosage: UNK, 2/D
     Route: 048
  10. DURAHIST [Concomitant]
     Indication: NASAL CONGESTION
     Dosage: UNK, 2/D
     Route: 048
  11. PROMETHAZINE [Concomitant]
     Dosage: 25 MG, UNK
  12. GLYBURIDE AND METFORMIN HYDROCHLORIDE [Concomitant]
     Dosage: UNK, EACH MORNING
  13. GLYBURIDE AND METFORMIN HYDROCHLORIDE [Concomitant]
     Dosage: UNK, EACH EVENING
  14. ZOCOR [Concomitant]
     Dosage: 40 MG, EACH EVENING
     Route: 048
  15. HYDROCODONE BITARTRATE AND ACETAMINOPHEN [Concomitant]
     Dosage: UNK, AS NEEDED
     Route: 048
  16. ASTELIN [Concomitant]
     Dosage: UNK, 2/D
     Route: 045
  17. NASONEX [Concomitant]
     Dosage: UNK, DAILY (1/D)
     Route: 045
  18. AZITHROMYCIN [Concomitant]
     Dosage: 250 MG, UNK
  19. CIPRODEX [Concomitant]
     Dosage: UNK, 2/D
  20. HYDROCHLOROTHIAZIDE [Concomitant]
  21. WELLBID-D [Concomitant]
  22. BENZONATATE [Concomitant]
  23. METOCLOPRAMIDE [Concomitant]
  24. ASPIRIN [Concomitant]
  25. ENULOSE [Concomitant]

REACTIONS (3)
  - GASTROINTESTINAL DISORDER [None]
  - GASTROOESOPHAGEAL REFLUX DISEASE [None]
  - PANCREATITIS [None]
